FAERS Safety Report 5032296-X (Version None)
Quarter: 2006Q2

REPORT INFORMATION
  Report Type: 
  Country: None (occurrence: None)
  Receive Date: 20060622
  Receipt Date: 20060613
  Transmission Date: 20061013
  Serious: Yes (Hospitalization)
  Sender: FDA-Public Use
  Company Number: US-JNJFOC-20060602903

PATIENT
  Age: 25 Year
  Sex: Female
  Weight: 68.95 kg

DRUGS (3)
  1. REMICADE [Suspect]
     Indication: CROHN'S DISEASE
     Route: 042
  2. PENTASA [Concomitant]
  3. IMURAN [Concomitant]

REACTIONS (3)
  - MYALGIA [None]
  - PYREXIA [None]
  - SENSORY DISTURBANCE [None]
